FAERS Safety Report 15685525 (Version 1)
Quarter: 2018Q4

REPORT INFORMATION
  Report Type: Spontaneous
  Country: US (occurrence: US)
  Receive Date: 20181204
  Receipt Date: 20181204
  Transmission Date: 20190205
  Serious: Yes (Hospitalization, Disabling, Other)
  Sender: FDA-Public Use
  Company Number: US-ANTARES PHARMA, INC.-2017-SPO-ME-0477

PATIENT
  Age: 15 Year
  Sex: Female
  Weight: 82.1 kg

DRUGS (17)
  1. RUXOLITINIB [Suspect]
     Active Substance: RUXOLITINIB
     Dosage: 95 MG, BID
     Route: 048
     Dates: start: 20170619, end: 20171220
  2. CYCLOPHOSPHAMIDE. [Suspect]
     Active Substance: CYCLOPHOSPHAMIDE
     Indication: ACUTE LYMPHOCYTIC LEUKAEMIA
     Dosage: 1790 MG, UNK
     Route: 042
     Dates: start: 20170719
  3. CYTARABINE. [Suspect]
     Active Substance: CYTARABINE
     Indication: ACUTE LYMPHOCYTIC LEUKAEMIA
     Dosage: 137.25 MG, QD
     Route: 042
     Dates: start: 20170505, end: 20170726
  4. CYTARABINE. [Suspect]
     Active Substance: CYTARABINE
     Dosage: 144 MG, UNK
     Route: 042
  5. PEGASPARGASE [Suspect]
     Active Substance: PEGASPARGASE
     Indication: ACUTE LYMPHOCYTIC LEUKAEMIA
     Dosage: 4475 IU, UNK
     Route: 042
     Dates: start: 20160506
  6. METHOTREXATE. [Suspect]
     Active Substance: METHOTREXATE
     Indication: ACUTE LYMPHOCYTIC LEUKAEMIA
     Dosage: 15 MG, UNK
     Route: 037
     Dates: start: 20170510
  7. RUXOLITINIB [Suspect]
     Active Substance: RUXOLITINIB
     Dosage: 90 MG, BID
     Route: 048
     Dates: start: 20170829
  8. RUXOLITINIB [Suspect]
     Active Substance: RUXOLITINIB
     Dosage: 95 MG, BID
     Route: 048
     Dates: start: 20180111
  9. CYTARABINE. [Suspect]
     Active Substance: CYTARABINE
     Dosage: 137.25 MG, QD
     Route: 042
     Dates: start: 20170829
  10. VINCRISTINE [Suspect]
     Active Substance: VINCRISTINE
     Dosage: 2 UNK, UNK
     Route: 042
     Dates: start: 20170603, end: 20171221
  11. MERCAPTOPURINE. [Suspect]
     Active Substance: MERCAPTOPURINE
     Dosage: 125 MG, UNK
     Route: 048
     Dates: start: 20170829
  12. PEGASPARGASE [Suspect]
     Active Substance: PEGASPARGASE
     Dosage: 4475 IU, UNK
     Route: 042
     Dates: start: 20170506
  13. RUXOLITINIB [Suspect]
     Active Substance: RUXOLITINIB
     Indication: ACUTE LYMPHOCYTIC LEUKAEMIA
     Dosage: 90 MG, BID
     Route: 048
     Dates: start: 20170619, end: 20170726
  14. VINCRISTINE [Suspect]
     Active Substance: VINCRISTINE
     Indication: ACUTE LYMPHOCYTIC LEUKAEMIA
     Dosage: 2 MG, UNK
     Route: 042
     Dates: start: 20170503
  15. PEGASPARGASE [Suspect]
     Active Substance: PEGASPARGASE
     Dosage: 4475 IU, UNK
     Route: 042
     Dates: start: 20180112
  16. MERCAPTOPURINE. [Suspect]
     Active Substance: MERCAPTOPURINE
     Indication: ACUTE LYMPHOCYTIC LEUKAEMIA
     Dosage: 125 MG, UNK
     Route: 065
     Dates: start: 20170619, end: 20170726
  17. THIOGUANINE [Suspect]
     Active Substance: THIOGUANINE
     Indication: ACUTE LYMPHOCYTIC LEUKAEMIA
     Dosage: 60 MG, QWK
     Route: 048
     Dates: start: 20171207

REACTIONS (8)
  - Encopresis [Recovered/Resolved]
  - Febrile neutropenia [Recovered/Resolved]
  - Cellulitis [Recovered/Resolved]
  - Febrile neutropenia [Recovered/Resolved]
  - Encopresis [Recovering/Resolving]
  - Bacterial infection [Recovered/Resolved]
  - Sepsis [Recovered/Resolved]
  - Perirectal abscess [Recovered/Resolved]

NARRATIVE: CASE EVENT DATE: 20170725
